FAERS Safety Report 19593751 (Version 1)
Quarter: 2021Q3

REPORT INFORMATION
  Report Type: Spontaneous
  Country: US (occurrence: US)
  Receive Date: 20210722
  Receipt Date: 20210722
  Transmission Date: 20211014
  Serious: Yes (Other)
  Sender: FDA-Public Use
  Company Number: US-ROCHE-2838706

PATIENT
  Sex: Female

DRUGS (15)
  1. ESTRADIOL. [Concomitant]
     Active Substance: ESTRADIOL
  2. CELECOXIB. [Concomitant]
     Active Substance: CELECOXIB
     Route: 048
  3. IPRATROPIUM BROMIDE. [Concomitant]
     Active Substance: IPRATROPIUM BROMIDE
     Route: 045
  4. JANUMET [Concomitant]
     Active Substance: METFORMIN HYDROCHLORIDE\SITAGLIPTIN PHOSPHATE
     Route: 048
  5. CENTRUM SILVER [Concomitant]
     Active Substance: MINERALS\VITAMINS
     Route: 048
  6. ADVAIR DISKUS [Concomitant]
     Active Substance: FLUTICASONE PROPIONATE\SALMETEROL XINAFOATE
  7. VALIUM [Suspect]
     Active Substance: DIAZEPAM
     Indication: PRODUCT USED FOR UNKNOWN INDICATION
     Route: 065
  8. ATORVASTATIN CALCIUM. [Concomitant]
     Active Substance: ATORVASTATIN CALCIUM
     Route: 048
  9. RESTASIS [Concomitant]
     Active Substance: CYCLOSPORINE
  10. ACTEMRA [Suspect]
     Active Substance: TOCILIZUMAB
     Indication: RHEUMATOID ARTHRITIS
     Dosage: 162 MG/0.9 MG
     Route: 058
     Dates: start: 201703
  11. NEURONTIN [Suspect]
     Active Substance: GABAPENTIN
     Indication: PRODUCT USED FOR UNKNOWN INDICATION
     Route: 065
  12. CARVEDILOL. [Concomitant]
     Active Substance: CARVEDILOL
     Route: 048
  13. CLOPIDOGREL BISULFATE. [Concomitant]
     Active Substance: CLOPIDOGREL BISULFATE
     Route: 048
  14. HYDRALAZINE HCL [Concomitant]
     Active Substance: HYDRALAZINE HYDROCHLORIDE
     Route: 048
  15. VALACYCLOVIR HCL [Concomitant]
     Active Substance: VALACYCLOVIR HYDROCHLORIDE

REACTIONS (30)
  - Uveitis [Unknown]
  - Foreign body sensation in eyes [Unknown]
  - Asthma [Unknown]
  - Fatigue [Unknown]
  - Joint swelling [Unknown]
  - Dizziness [Unknown]
  - Essential hypertension [Unknown]
  - Headache [Unknown]
  - Type 1 diabetes mellitus [Unknown]
  - Systemic lupus erythematosus [Unknown]
  - Drug hypersensitivity [Unknown]
  - Osteoarthritis [Unknown]
  - Hyperlipidaemia [Unknown]
  - Fibromyalgia [Unknown]
  - Foot deformity [Unknown]
  - Intervertebral disc degeneration [Unknown]
  - Retinopathy [Unknown]
  - Bursitis [Unknown]
  - Paraesthesia [Unknown]
  - Onychomycosis [Unknown]
  - Peripheral vascular disorder [Unknown]
  - Neuropathy peripheral [Unknown]
  - Dry eye [Unknown]
  - Spinal osteoarthritis [Unknown]
  - Haemorrhoids [Unknown]
  - Sleep apnoea syndrome [Unknown]
  - Diverticulitis [Unknown]
  - Arthralgia [Unknown]
  - Obesity [Unknown]
  - Hypoaesthesia [Unknown]
